FAERS Safety Report 5173152-6 (Version None)
Quarter: 2006Q4

REPORT INFORMATION
  Report Type: 
  Country: None (occurrence: None)
  Receive Date: 20061207
  Receipt Date: 20061207
  Transmission Date: 20070319
  Serious: Yes (Hospitalization)
  Sender: FDA-Public Use
  Company Number: None

PATIENT
  Age: 63 Year
  Sex: Male
  Weight: 79.8 kg

DRUGS (3)
  1. LISINOPRIL [Suspect]
     Indication: HYPERTENSION
     Dosage: 20 MG BID PO
     Route: 048
  2. LISINOPRIL [Suspect]
     Indication: RENAL FAILURE CHRONIC
     Dosage: 20 MG BID PO
     Route: 048
  3. AMLODIPINE [Concomitant]

REACTIONS (3)
  - LIP SWELLING [None]
  - SWELLING FACE [None]
  - SWOLLEN TONGUE [None]
